FAERS Safety Report 5235397-6 (Version None)
Quarter: 2007Q1

REPORT INFORMATION
  Report Type: 
  Country: None (occurrence: None)
  Receive Date: 20070212
  Receipt Date: 20070202
  Transmission Date: 20070707
  Serious: Yes (Other)
  Sender: FDA-Public Use
  Company Number: FRWYE314824JAN07

PATIENT
  Age: 60 Year
  Sex: Male

DRUGS (2)
  1. ENBREL [Suspect]
     Indication: PSORIATIC ARTHROPATHY
     Dosage: UNKNOWN
     Route: 058
     Dates: start: 20020101, end: 20061201
  2. ENBREL [Suspect]
     Dosage: UNKNOWN
     Route: 058
     Dates: start: 20070101

REACTIONS (3)
  - INTRA-ABDOMINAL HAEMANGIOMA [None]
  - LARGE INTESTINAL HAEMORRHAGE [None]
  - MELAENA [None]
